FAERS Safety Report 7052678-4 (Version None)
Quarter: 2010Q4

REPORT INFORMATION
  Report Type: 
  Country: None (occurrence: None)
  Receive Date: 20101019
  Receipt Date: 20101007
  Transmission Date: 20110411
  Serious: Yes (Other)
  Sender: FDA-Public Use
  Company Number: US-PFIZER INC-2010127596

PATIENT
  Age: 58 Year
  Sex: Female

DRUGS (2)
  1. XALATAN [Suspect]
     Indication: INTRAOCULAR PRESSURE TEST
     Dosage: UNK
     Dates: start: 20081001
  2. PRAVASTATIN [Concomitant]
     Dosage: UNK
     Dates: end: 20100701

REACTIONS (1)
  - DEAFNESS [None]
